FAERS Safety Report 15848289 (Version 4)
Quarter: 2019Q2

REPORT INFORMATION
  Report Type: Spontaneous
  Country: US (occurrence: US)
  Receive Date: 20190121
  Receipt Date: 20190419
  Transmission Date: 20190711
  Serious: No
  Sender: FDA-Public Use
  Company Number: US-PFIZER INC-2019024044

PATIENT
  Age: 73 Year
  Sex: Female

DRUGS (1)
  1. XELJANZ XR [Suspect]
     Active Substance: TOFACITINIB CITRATE
     Indication: RHEUMATOID ARTHRITIS
     Dosage: 11 MG, DAILY
     Route: 048
     Dates: start: 20180701, end: 20190125

REACTIONS (10)
  - Abdominal pain upper [Unknown]
  - Depressed mood [Unknown]
  - Tearfulness [Unknown]
  - Herpes zoster [Unknown]
  - Headache [Unknown]
  - Mood altered [Unknown]
  - Nasal congestion [Unknown]
  - Sinus disorder [Unknown]
  - Epistaxis [Unknown]
  - Rhinorrhoea [Unknown]

NARRATIVE: CASE EVENT DATE: 2018
